FAERS Safety Report 7403766-1 (Version None)
Quarter: 2011Q2

REPORT INFORMATION
  Report Type: 
  Country: None (occurrence: None)
  Receive Date: 20110408
  Receipt Date: 20110404
  Transmission Date: 20111010
  Serious: Yes (Other)
  Sender: FDA-Public Use
  Company Number: NL-ABBOTT-11P-114-0717070-00

PATIENT
  Sex: Male
  Weight: 128 kg

DRUGS (14)
  1. FOLIC ACID [Concomitant]
     Indication: VITAMIN SUPPLEMENTATION
     Route: 048
     Dates: start: 19990101
  2. GLUCAGON [Concomitant]
     Indication: HYPOGLYCAEMIA
     Dosage: USUS COGNITUS (USE IS UNKNOWN TO PATIENT)
     Route: 058
     Dates: start: 20080303
  3. INSULIN LISPRO [Concomitant]
     Indication: TYPE 2 DIABETES MELLITUS
     Dosage: 100UNITS/ML VIAL 3 ML
     Dates: start: 20080303
  4. DICLOFENAC W/MISOPROSTOL [Concomitant]
     Indication: ARTHRALGIA
     Dosage: 75MG/200MCG TWICE DAILY
     Route: 048
     Dates: start: 20100818
  5. METFORMIN [Concomitant]
     Indication: TYPE 2 DIABETES MELLITUS
     Route: 048
     Dates: start: 20101210
  6. OMEPRAZOLE [Concomitant]
     Indication: GASTRIC DISORDER
     Route: 048
     Dates: start: 20110224
  7. SIMVASTATIN [Concomitant]
     Indication: BLOOD CHOLESTEROL INCREASED
     Route: 048
     Dates: start: 20040101
  8. TAMSULOSINE [Concomitant]
     Indication: URINARY TRACT DISORDER
     Route: 048
     Dates: start: 20060901
  9. METHOTREXATE [Concomitant]
     Indication: RHEUMATOID ARTHRITIS
     Route: 048
     Dates: start: 19990101, end: 20110302
  10. LOSARTAN POTASSIUM [Concomitant]
     Indication: HYPERTENSION
     Route: 048
     Dates: start: 20080101
  11. METOPROLOL SUCCINATE [Concomitant]
     Indication: HYPERTENSION
     Route: 048
     Dates: start: 20070101
  12. OXAZEPAM [Concomitant]
     Indication: INSOMNIA
     Route: 048
     Dates: start: 20110107
  13. HUMIRA [Suspect]
     Indication: RHEUMATOID ARTHRITIS
     Route: 058
     Dates: start: 20110302
  14. HYDROCHLOROTHIAZIDE [Concomitant]
     Indication: HYPERTENSION
     Route: 048
     Dates: start: 20040101

REACTIONS (5)
  - URINARY TRACT DISORDER [None]
  - PROSTATIC SPECIFIC ANTIGEN INCREASED [None]
  - BRONCHITIS [None]
  - INJECTION SITE INDURATION [None]
  - INJECTION SITE IRRITATION [None]
